FAERS Safety Report 8963285 (Version 2)
Quarter: 2013Q1

REPORT INFORMATION
  Report Type: Spontaneous
  Country: US (occurrence: US)
  Receive Date: 20121213
  Receipt Date: 20130219
  Transmission Date: 20140127
  Serious: Yes (Other)
  Sender: FDA-Public Use
  Company Number: US-PFIZER INC-2012315047

PATIENT
  Sex: Female

DRUGS (1)
  1. LYRICA [Suspect]
     Dosage: UNK

REACTIONS (10)
  - Weight increased [Unknown]
  - Oedema peripheral [Unknown]
  - Migraine [Unknown]
  - Drug intolerance [Unknown]
  - Urticaria [Unknown]
  - Dyspnoea [Unknown]
  - Rash [Unknown]
  - Gait disturbance [Unknown]
  - Sensation of heaviness [Unknown]
  - Chest discomfort [Unknown]
